FAERS Safety Report 9847286 (Version 2)
Quarter: 2014Q1

REPORT INFORMATION
  Report Type: Spontaneous
  Country: IL (occurrence: IL)
  Receive Date: 20140127
  Receipt Date: 20140218
  Transmission Date: 20141002
  Serious: Yes (Hospitalization)
  Sender: FDA-Public Use
  Company Number: IL-ABBVIE-14P-082-1192259-00

PATIENT
  Sex: Male
  Weight: 73 kg

DRUGS (4)
  1. HUMIRA [Suspect]
     Indication: CROHN^S DISEASE
     Dates: start: 20081208, end: 20121201
  2. HUMIRA [Suspect]
     Dosage: LOADING DOSE
     Dates: start: 20140126
  3. COUMADIN [Concomitant]
     Indication: THROMBOSIS
     Dates: start: 2003
  4. COUMADIN [Concomitant]
     Dates: start: 201302

REACTIONS (8)
  - Thrombosis [Unknown]
  - Peripheral embolism [Unknown]
  - Oedema peripheral [Unknown]
  - Crohn^s disease [Unknown]
  - Blood albumin decreased [Unknown]
  - Blood iron decreased [Unknown]
  - Oedema [Unknown]
  - Weight decreased [Recovering/Resolving]
